FAERS Safety Report 9962284 (Version 1)
Quarter: 2014Q1

REPORT INFORMATION
  Report Type: Report from Study
  Country: US (occurrence: US)
  Receive Date: 20140305
  Receipt Date: 20140305
  Transmission Date: 20141002
  Serious: No
  Sender: FDA-Public Use
  Company Number: US-ABBVIE-13P-163-1114187-00

PATIENT
  Age: 21 Year
  Sex: Male

DRUGS (4)
  1. HUMIRA [Suspect]
     Indication: CROHN^S DISEASE
     Dates: start: 20120904
  2. FISH OIL [Concomitant]
     Indication: SKIN DISORDER
     Dosage: DAILY
  3. METHOTREXATE [Concomitant]
     Indication: CROHN^S DISEASE
     Dosage: 2.5 MG #6 PILLS WEEKLY
  4. FOLIC ACID [Concomitant]
     Indication: PRODUCT USED FOR UNKNOWN INDICATION
     Dosage: 1 MG DAILY

REACTIONS (3)
  - Incorrect product storage [Unknown]
  - Pain [Not Recovered/Not Resolved]
  - Injection site urticaria [Not Recovered/Not Resolved]
